FAERS Safety Report 7423309-6 (Version None)
Quarter: 2011Q2

REPORT INFORMATION
  Report Type: 
  Country: None (occurrence: None)
  Receive Date: 20110419
  Receipt Date: 20110412
  Transmission Date: 20111010
  Serious: Yes (Hospitalization)
  Sender: FDA-Public Use
  Company Number: GB-ROCHE-769243

PATIENT
  Sex: Female
  Weight: 62.7 kg

DRUGS (3)
  1. LEVOTHYROXINE SODIUM [Concomitant]
     Indication: HYPOTHYROIDISM
     Route: 048
     Dates: start: 20060124
  2. BEVACIZUMAB [Suspect]
     Indication: BREAST CANCER
     Dosage: LAST DOSE PRIOR TO SAE 18 MAR 2011. PERMANENTLY DISCONTINUED.
     Route: 065
     Dates: start: 20110318
  3. DOCETAXEL [Suspect]
     Indication: BREAST CANCER
     Dosage: LAST DOSE PRIOR TO SAE 18 MARCH 2011
     Route: 065
     Dates: start: 20110318

REACTIONS (1)
  - MYOCARDIAL ISCHAEMIA [None]
